FAERS Safety Report 11686678 (Version 1)
Quarter: 2015Q4

REPORT INFORMATION
  Report Type: Report from Study
  Country: FR (occurrence: FR)
  Receive Date: 20151030
  Receipt Date: 20151030
  Transmission Date: 20160304
  Serious: Yes (Other)
  Sender: FDA-Public Use
  Company Number: FR-BRISTOL-MYERS SQUIBB COMPANY-BMS-2015-049293

PATIENT
  Age: 68 Year
  Sex: Female
  Weight: 50 kg

DRUGS (3)
  1. NIVOLUMAB [Suspect]
     Active Substance: NIVOLUMAB
     Dosage: 150 MG, 3MG/KG
     Route: 065
     Dates: start: 20150820
  2. NIVOLUMAB [Suspect]
     Active Substance: NIVOLUMAB
     Dosage: 150 MG, 3MG/KG
     Route: 065
     Dates: start: 20150903
  3. NIVOLUMAB [Suspect]
     Active Substance: NIVOLUMAB
     Indication: NON-SMALL CELL LUNG CANCER
     Dosage: 3 MG/KG, UNK
     Route: 065
     Dates: start: 20150625, end: 20150916

REACTIONS (9)
  - Haemoglobin decreased [Recovered/Resolved]
  - Blood chloride decreased [Recovered/Resolved]
  - Blood potassium increased [Unknown]
  - Back pain [Not Recovered/Not Resolved]
  - Nausea [Not Recovered/Not Resolved]
  - Malignant neoplasm progression [Unknown]
  - Blood alkaline phosphatase increased [Recovered/Resolved]
  - Lymphocyte count decreased [Unknown]
  - Asthenia [Not Recovered/Not Resolved]

NARRATIVE: CASE EVENT DATE: 20150706
